FAERS Safety Report 11197134 (Version 2)
Quarter: 2015Q3

REPORT INFORMATION
  Report Type: Spontaneous
  Country: AT (occurrence: AT)
  Receive Date: 20150617
  Receipt Date: 20150721
  Transmission Date: 20151125
  Serious: Yes (Hospitalization, Other)
  Sender: FDA-Public Use
  Company Number: AT-JNJFOC-20150611319

PATIENT
  Sex: Female
  Weight: 85 kg

DRUGS (7)
  1. XARELTO [Suspect]
     Active Substance: RIVAROXABAN
     Indication: CEREBROVASCULAR ACCIDENT PROPHYLAXIS
     Route: 048
     Dates: start: 201401, end: 20150527
  2. ALLOPURINOL. [Concomitant]
     Active Substance: ALLOPURINOL
     Indication: GOUTY ARTHRITIS
     Route: 065
     Dates: start: 201411
  3. LASIX [Concomitant]
     Active Substance: FUROSEMIDE
     Route: 048
  4. SPIRIVA [Concomitant]
     Active Substance: TIOTROPIUM BROMIDE MONOHYDRATE
     Indication: CHRONIC OBSTRUCTIVE PULMONARY DISEASE
     Route: 055
  5. XARELTO [Suspect]
     Active Substance: RIVAROXABAN
     Indication: ATRIAL FIBRILLATION
     Route: 048
     Dates: start: 201401, end: 20150527
  6. SYMBICORT [Concomitant]
     Active Substance: BUDESONIDE\FORMOTEROL FUMARATE DIHYDRATE
     Route: 065
  7. HYPREN [Concomitant]
     Indication: HYPERTENSION
     Route: 048

REACTIONS (2)
  - Upper gastrointestinal haemorrhage [Recovered/Resolved]
  - Gastritis erosive [Recovered/Resolved]

NARRATIVE: CASE EVENT DATE: 20150527
